FAERS Safety Report 15763931 (Version 1)
Quarter: 2018Q4

REPORT INFORMATION
  Report Type: Spontaneous
  Country: US (occurrence: US)
  Receive Date: 20181227
  Receipt Date: 20181227
  Transmission Date: 20190205
  Serious: Yes (Other)
  Sender: FDA-Public Use
  Company Number: US-AMGEN-USASP2018183044

PATIENT
  Age: 70 Year
  Sex: Male

DRUGS (1)
  1. REPATHA [Suspect]
     Active Substance: EVOLOCUMAB
     Indication: PRODUCT USED FOR UNKNOWN INDICATION
     Dosage: UNK, Q2WK
     Route: 065
     Dates: end: 20180818

REACTIONS (8)
  - Pain in extremity [Unknown]
  - Joint swelling [Unknown]
  - Muscle spasms [Recovered/Resolved]
  - Mobility decreased [Unknown]
  - Muscle mass [Unknown]
  - Musculoskeletal pain [Recovering/Resolving]
  - Arthralgia [Unknown]
  - Sleep disorder due to a general medical condition [Unknown]

NARRATIVE: CASE EVENT DATE: 2018
